FAERS Safety Report 5420800-9 (Version None)
Quarter: 2007Q3

REPORT INFORMATION
  Report Type: 
  Country: None (occurrence: None)
  Receive Date: 20070816
  Receipt Date: 20070720
  Transmission Date: 20080115
  Serious: Yes (Other)
  Sender: FDA-Public Use
  Company Number: 6036233

PATIENT
  Age: 38 Year
  Sex: Female

DRUGS (10)
  1. FLUCONAZOLE [Suspect]
     Indication: PYREXIA
     Dosage: (400 MG) INTRAVENOUS (NOT OTHERWISE SPECIFIED)
     Route: 042
  2. DESLORATADINE [Suspect]
     Indication: PRURITUS
     Dosage: 10 MG (10 MG, 1 IN 1 D)
  3. CLEMASTINE (CLEMASTINE) [Concomitant]
  4. ALLOPURINOL [Concomitant]
  5. RANITIDINE [Concomitant]
  6. LORAZEPAM [Concomitant]
  7. LEVOFLOXACIN [Concomitant]
  8. SPIRONOLACTONE [Concomitant]
  9. NEUPOGEN [Concomitant]
  10. MEROPENEM (MEROPENEM) [Concomitant]

REACTIONS (2)
  - DRUG INTERACTION [None]
  - HEPATOTOXICITY [None]
